FAERS Safety Report 9611914 (Version 2)
Quarter: 2013Q4

REPORT INFORMATION
  Report Type: Spontaneous
  Country: ES (occurrence: ES)
  Receive Date: 20131010
  Receipt Date: 20131010
  Transmission Date: 20140711
  Serious: Yes (Death, Hospitalization, Other)
  Sender: FDA-Public Use
  Company Number: ES-ASTELLAS-2013EU007538

PATIENT
  Age: 50 Year
  Sex: Male

DRUGS (5)
  1. PROGRAF [Suspect]
     Dosage: 0.1 MG/KG, UNKNOWN/D
     Route: 065
     Dates: start: 20110902, end: 20110913
  2. ADVAGRAF [Suspect]
     Dosage: 1 MG, UNKNOWN/D
     Route: 065
     Dates: start: 20110914, end: 20120805
  3. ADVAGRAF [Suspect]
     Dosage: 3 MG, UID/QD
     Route: 065
  4. MYCOPHENOLATE MOFETIL [Suspect]
     Indication: IMMUNOSUPPRESSION
     Dosage: 500 MG, Q12 HOURS
     Route: 065
  5. EVEROLIMUS [Suspect]
     Indication: IMMUNOSUPPRESSION
     Dosage: 0.5 MG, Q12 HOURS
     Route: 065

REACTIONS (8)
  - Drug ineffective [Unknown]
  - Transplant rejection [Fatal]
  - Acute hepatic failure [Fatal]
  - Hepatitis [Unknown]
  - Transplant rejection [Unknown]
  - Chronic hepatitis [Unknown]
  - Renal impairment [Unknown]
  - Hepatitis C [Unknown]
